FAERS Safety Report 5870339-1 (Version None)
Quarter: 2008Q3

REPORT INFORMATION
  Report Type: 
  Country: None (occurrence: None)
  Receive Date: 20080904
  Receipt Date: 20070924
  Transmission Date: 20090109
  Serious: No
  Sender: FDA-Public Use
  Company Number: US-BRISTOL-MYERS SQUIBB COMPANY-13916861

PATIENT
  Age: 78 Year
  Sex: Male

DRUGS (12)
  1. DEFINITY [Suspect]
     Indication: CARDIAC PHARMACOLOGIC STRESS TEST
     Dates: start: 20070921, end: 20070921
  2. ATENOLOL [Concomitant]
  3. AMIODARONE [Concomitant]
  4. COUMADIN [Concomitant]
  5. LASIX [Concomitant]
  6. ALDACTONE [Concomitant]
  7. MICARDIS [Concomitant]
  8. HYDROCHLOROTHIAZIDE [Concomitant]
  9. NAPROXEN [Concomitant]
  10. DIGOXIN TAB [Concomitant]
  11. REMERON [Concomitant]
  12. PROBENECID [Concomitant]

REACTIONS (1)
  - BACK PAIN [None]
